FAERS Safety Report 9099505 (Version 2)
Quarter: 2013Q1

REPORT INFORMATION
  Report Type: Spontaneous
  Country: US (occurrence: US)
  Receive Date: 20130214
  Receipt Date: 20130301
  Transmission Date: 20140127
  Serious: No
  Sender: FDA-Public Use
  Company Number: US-PFIZER INC-2013059487

PATIENT
  Age: 55 Year
  Sex: Female

DRUGS (2)
  1. EFFEXOR XR [Suspect]
     Indication: DEPRESSION
     Dosage: 150 MG, 1X/DAY
     Route: 048
     Dates: start: 2009
  2. EFFEXOR [Suspect]
     Dosage: 1 DF (37.5), 1X/DAY
     Route: 048

REACTIONS (7)
  - Nervousness [Unknown]
  - Muscle twitching [Unknown]
  - Drug withdrawal syndrome [Unknown]
  - Insomnia [Unknown]
  - Dehydration [Unknown]
  - Mood altered [Unknown]
  - Activities of daily living impaired [Unknown]
